FAERS Safety Report 15000380 (Version 2)
Quarter: 2018Q2

REPORT INFORMATION
  Report Type: Spontaneous
  Country: AU (occurrence: AU)
  Receive Date: 20180612
  Receipt Date: 20180622
  Transmission Date: 20180711
  Serious: Yes (Other)
  Sender: FDA-Public Use
  Company Number: AU-PFIZER INC-2018172693

PATIENT
  Age: 62 Year
  Sex: Male
  Weight: 69 kg

DRUGS (21)
  1. METFORMIN [Concomitant]
     Active Substance: METFORMIN HYDROCHLORIDE
     Indication: DIABETES MELLITUS
     Dosage: 1000 MG, EVENING
  2. CRESTOR [Concomitant]
     Active Substance: ROSUVASTATIN CALCIUM
     Indication: BLOOD CHOLESTEROL ABNORMAL
     Dosage: 10 MG, EVENING
  3. PHOSPHATE SANDOZ [Concomitant]
     Active Substance: SODIUM PHOSPHATE, MONOBASIC, ANHYDROUS
     Indication: BONE DISORDER
     Dosage: 500 MG, 2XDAY MORNING AND EVENING
  4. GLUCOSAMINE [Concomitant]
     Active Substance: GLUCOSAMINE
     Indication: ARTHROPATHY
     Dosage: 1500 MG, EVENING
  5. ENDONE [Concomitant]
     Active Substance: OXYCODONE HYDROCHLORIDE
     Dosage: UNK
  6. BREO ELLIPTA [Concomitant]
     Active Substance: FLUTICASONE FUROATE\VILANTEROL TRIFENATATE
     Indication: ASTHMA
     Dosage: MORNING 1 DOSE
  7. METHOTREXATE (METHOTREXATE SODIUM) [Suspect]
     Active Substance: METHOTREXATE SODIUM
     Indication: NEURODERMATITIS
     Dosage: 10 MG, WEEKLY (TUES)
     Route: 048
     Dates: start: 20060330
  8. TRITACE [Concomitant]
     Active Substance: RAMIPRIL
     Indication: BLOOD PRESSURE ABNORMAL
     Dosage: 10 MG, MORNING
  9. FOLIC ACID. [Concomitant]
     Active Substance: FOLIC ACID
     Indication: PROPHYLAXIS
     Dosage: 5 MG, WEEKLY, ON THUR
  10. DIPROSONE OV [Concomitant]
     Indication: SKIN DISORDER
     Dosage: AS NEEDED
  11. CELESTONE M [Concomitant]
     Indication: SKIN DISORDER
     Dosage: AS NEEDED
  12. PALEXIA [Concomitant]
     Active Substance: TAPENTADOL HYDROCHLORIDE
     Dosage: UNK
  13. FEXOFENADINE [Concomitant]
     Active Substance: FEXOFENADINE\FEXOFENADINE HYDROCHLORIDE
     Indication: SEASONAL ALLERGY
     Dosage: 180 MG 2XDAY, MORNING AND EVENING
  14. DAKTAGOLD [Concomitant]
     Active Substance: KETOCONAZOLE
     Indication: TINEA INFECTION
     Dosage: AS NEEDED
  15. DESOWEN [Concomitant]
     Active Substance: DESONIDE
     Indication: SKIN DISORDER
     Dosage: AS NEEDED
  16. MICARDIS [Concomitant]
     Active Substance: TELMISARTAN
     Indication: BLOOD PRESSURE ABNORMAL
     Dosage: 80 MG,  EVENING
  17. PHYSIOTENS [Concomitant]
     Active Substance: MOXONIDINE
     Indication: BLOOD PRESSURE ABNORMAL
     Dosage: 400 UG, EVENING
  18. NOTEN [Concomitant]
     Active Substance: ATENOLOL
     Indication: BLOOD PRESSURE ABNORMAL
     Dosage: MORNING 0.5 X 50MG, EVENING 50MG
  19. ASPIRIN /00346701/ [Concomitant]
     Active Substance: ASCORBIC ACID\ASPIRIN
     Indication: BLOOD DISORDER
     Dosage: 150 MG, UNK MORNING
  20. ELOCON [Concomitant]
     Active Substance: MOMETASONE FUROATE
     Indication: SKIN DISORDER
     Dosage: AS NEEDED
  21. TARGIN [Concomitant]
     Active Substance: NALOXONE HYDROCHLORIDE\OXYCODONE HYDROCHLORIDE
     Dosage: UNK

REACTIONS (7)
  - Drug dose omission [Unknown]
  - Drug ineffective [Recovering/Resolving]
  - Anal fistula [Unknown]
  - Transient ischaemic attack [Unknown]
  - Asthma [Unknown]
  - Anal abscess [Unknown]
  - Tricuspid valve disease [Unknown]

NARRATIVE: CASE EVENT DATE: 20060814
